FAERS Safety Report 4381434-0 (Version None)
Quarter: 2004Q2

REPORT INFORMATION
  Report Type: 
  Country: None (occurrence: None)
  Receive Date: 20040617
  Receipt Date: 20040617
  Transmission Date: 20050107
  Serious: Yes (Other)
  Sender: FDA-Public Use
  Company Number: None

PATIENT
  Age: 31 Year
  Sex: Female
  Weight: 76.6579 kg

DRUGS (1)
  1. TRINESA WATSON PHARMA [Suspect]
     Indication: CONTRACEPTION
     Dosage: ONE DAILY ORAL
     Route: 048
     Dates: start: 20040310, end: 20040410

REACTIONS (2)
  - DYSPEPSIA [None]
  - PHARMACEUTICAL PRODUCT COMPLAINT [None]
